FAERS Safety Report 4311170-8 (Version None)
Quarter: 2004Q1

REPORT INFORMATION
  Report Type: 
  Country: None (occurrence: None)
  Receive Date: 20040302
  Receipt Date: 20040219
  Transmission Date: 20041129
  Serious: Yes (Death)
  Sender: FDA-Public Use
  Company Number: 04P-163-0251189-00

PATIENT

DRUGS (1)
  1. DEPAKENE [Suspect]

REACTIONS (4)
  - DRUG HYPERSENSITIVITY [None]
  - HEPATITIS FULMINANT [None]
  - JAUNDICE [None]
  - LICHEN PLANUS [None]
